FAERS Safety Report 8045825-9 (Version None)
Quarter: 2012Q1

REPORT INFORMATION
  Report Type: 
  Country: None (occurrence: None)
  Receive Date: 20120113
  Receipt Date: 20120111
  Transmission Date: 20120608
  Serious: Yes (Other)
  Sender: FDA-Public Use
  Company Number: BR-ROCHE-1029653

PATIENT
  Sex: Female
  Weight: 57 kg

DRUGS (6)
  1. METHOTREXATE [Concomitant]
  2. CALCIUM [Concomitant]
  3. MABTHERA [Suspect]
     Indication: RHEUMATOID ARTHRITIS
     Dates: start: 20101001
  4. INSULIN [Concomitant]
  5. ARAVA [Concomitant]
  6. METFFORMIN HYDROCHLORIDE [Concomitant]

REACTIONS (8)
  - SALIVA ALTERED [None]
  - MALAISE [None]
  - BLOOD PRESSURE INCREASED [None]
  - DIABETES MELLITUS [None]
  - SYNCOPE [None]
  - HYPERSENSITIVITY [None]
  - HYPOAESTHESIA ORAL [None]
  - SPEECH DISORDER [None]
